FAERS Safety Report 9985818 (Version 1)
Quarter: 2014Q1

REPORT INFORMATION
  Report Type: Report from Study
  Country: CA (occurrence: CA)
  Receive Date: 20140307
  Receipt Date: 20140307
  Transmission Date: 20141002
  Serious: Yes (Other)
  Sender: FDA-Public Use
  Company Number: CA-ABBVIE-14P-028-1207834-00

PATIENT
  Sex: Male
  Weight: 99.88 kg

DRUGS (14)
  1. HUMIRA [Suspect]
     Indication: CROHN^S DISEASE
     Route: 058
     Dates: start: 20090409
  2. HUMIRA [Suspect]
     Route: 058
     Dates: end: 2011
  3. HUMIRA [Suspect]
     Route: 058
     Dates: start: 2011, end: 2011
  4. HUMIRA [Suspect]
     Route: 058
  5. IMODIUM [Concomitant]
     Indication: CROHN^S DISEASE
     Route: 048
     Dates: start: 1978
  6. ANDROGEL [Concomitant]
     Indication: BLOOD TESTOSTERONE ABNORMAL
     Route: 061
     Dates: start: 2004
  7. FENTANYL [Concomitant]
     Indication: PAIN
     Route: 062
  8. NAPROXEN [Concomitant]
     Indication: ARTHRITIS
     Route: 048
     Dates: start: 2012
  9. FLUOXETINE [Concomitant]
     Indication: AFFECTIVE DISORDER
     Route: 048
     Dates: start: 2000
  10. SUCRALFATE [Concomitant]
     Indication: GASTROOESOPHAGEAL REFLUX DISEASE
     Route: 048
  11. PANTOPRAZOLE [Concomitant]
     Indication: GASTROOESOPHAGEAL REFLUX DISEASE
     Route: 048
  12. APO-K [Concomitant]
     Indication: ELECTROLYTE IMBALANCE
     Route: 048
  13. CIPROFLOXACIN [Concomitant]
     Indication: INFECTION PROPHYLAXIS
     Route: 048
  14. METRONIDAZOLE [Concomitant]
     Indication: INFECTION PROPHYLAXIS
     Route: 048

REACTIONS (2)
  - Post procedural complication [Recovered/Resolved]
  - Crohn^s disease [Recovered/Resolved]
